FAERS Safety Report 9832353 (Version 1)
Quarter: 2014Q1

REPORT INFORMATION
  Report Type: Spontaneous
  Country: US (occurrence: US)
  Receive Date: 20140121
  Receipt Date: 20140121
  Transmission Date: 20141002
  Serious: Yes (Death)
  Sender: FDA-Public Use
  Company Number: US-GILEAD-2014-0092607

PATIENT
  Sex: Male

DRUGS (1)
  1. LETAIRIS [Suspect]
     Indication: LUNG DISORDER
     Route: 048
     Dates: start: 20120217, end: 20131228

REACTIONS (1)
  - Disease progression [Fatal]
